FAERS Safety Report 7474812-4 (Version None)
Quarter: 2011Q1

REPORT INFORMATION
  Report Type: 
  Country: None (occurrence: None)
  Receive Date: 20110302
  Receipt Date: 20100921
  Transmission Date: 20110831
  Serious: Yes (Other)
  Sender: FDA-Public Use
  Company Number: 163-21880-10092017

PATIENT
  Age: 56 Year
  Sex: Male

DRUGS (2)
  1. REVLIMID [Suspect]
     Indication: MULTIPLE MYELOMA
     Dosage: 25 MG, QD X 21D, PO
     Route: 048
     Dates: start: 20100614
  2. VELCADE [Concomitant]

REACTIONS (2)
  - PULMONARY EMBOLISM [None]
  - LIMB DISCOMFORT [None]
